FAERS Safety Report 23979953 (Version 3)
Quarter: 2024Q3

REPORT INFORMATION
  Report Type: Report from Study
  Country: CA (occurrence: CA)
  Receive Date: 20240617
  Receipt Date: 20240802
  Transmission Date: 20241016
  Serious: Yes (Death, Hospitalization)
  Sender: BIOGEN
  Company Number: CA-BIOGEN-2024BI01269205

PATIENT
  Age: 69 Year
  Sex: Male

DRUGS (1)
  1. DALFAMPRIDINE [Suspect]
     Active Substance: DALFAMPRIDINE
     Indication: Multiple sclerosis
     Route: 050
     Dates: start: 20160909, end: 20240612

REACTIONS (3)
  - Death [Fatal]
  - Colon cancer metastatic [Not Recovered/Not Resolved]
  - Glomerular filtration rate decreased [Not Recovered/Not Resolved]

NARRATIVE: CASE EVENT DATE: 20240723
